FAERS Safety Report 4909093-6 (Version None)
Quarter: 2006Q1

REPORT INFORMATION
  Report Type: 
  Country: None (occurrence: None)
  Receive Date: 20060213
  Receipt Date: 20051212
  Transmission Date: 20060701
  Serious: Yes (Hospitalization)
  Sender: FDA-Public Use
  Company Number: GB-ABBOTT-05P-167-0319452-00

PATIENT
  Age: 72 Year
  Sex: Female

DRUGS (4)
  1. VALPROATE SODIUM [Suspect]
     Indication: CONVULSION
     Route: 048
     Dates: start: 20050401
  2. VALPROATE SODIUM [Suspect]
     Route: 048
  3. VALPROATE SODIUM [Suspect]
     Route: 048
     Dates: start: 20051101
  4. CARBAMAZEPINE [Concomitant]
     Indication: DRUG USE FOR UNKNOWN INDICATION
     Route: 048

REACTIONS (9)
  - CANDIDIASIS [None]
  - CONFUSIONAL STATE [None]
  - CONVULSION [None]
  - DIZZINESS [None]
  - HALLUCINATION [None]
  - HEARING IMPAIRED [None]
  - OEDEMA PERIPHERAL [None]
  - SOMNOLENCE [None]
  - URINARY TRACT INFECTION [None]
